FAERS Safety Report 21308440 (Version 6)
Quarter: 2024Q2

REPORT INFORMATION
  Report Type: Report from Study
  Country: US (occurrence: US)
  Receive Date: 20220908
  Receipt Date: 20240402
  Transmission Date: 20240716
  Serious: No
  Sender: FDA-Public Use
  Company Number: US-NOVARTISTESTPH-NVSC2022US202530

PATIENT
  Age: 26 Year
  Sex: Female

DRUGS (4)
  1. ILARIS [Suspect]
     Active Substance: CANAKINUMAB
     Indication: Amyloidosis
     Dosage: 150 MG, Q2W
     Route: 058
     Dates: start: 20191028
  2. ILARIS [Suspect]
     Active Substance: CANAKINUMAB
     Indication: Familial mediterranean fever
     Dosage: 150 MG, OTHER (EVERY TWO WEEKS)
     Route: 058
     Dates: start: 20191028
  3. ILARIS [Suspect]
     Active Substance: CANAKINUMAB
     Dosage: 150 MG, Q2W
     Route: 058
     Dates: start: 20201006
  4. ILARIS [Suspect]
     Active Substance: CANAKINUMAB
     Dosage: 150 MG, Q2W
     Route: 058
     Dates: start: 20230213

REACTIONS (3)
  - Arthritis [Unknown]
  - Inappropriate schedule of product administration [Unknown]
  - Condition aggravated [Unknown]

NARRATIVE: CASE EVENT DATE: 20220904
